FAERS Safety Report 8285411-9 (Version None)
Quarter: 2012Q2

REPORT INFORMATION
  Report Type: 
  Country: None (occurrence: None)
  Receive Date: 20120413
  Receipt Date: 20111031
  Transmission Date: 20120825
  Serious: No
  Sender: FDA-Public Use
  Company Number: US-ASTRAZENECA-2011SE58645

PATIENT
  Age: 61 Year
  Sex: Female

DRUGS (1)
  1. NEXIUM [Suspect]
     Route: 048

REACTIONS (8)
  - MALAISE [None]
  - SINUS DISORDER [None]
  - ERUCTATION [None]
  - DRUG DOSE OMISSION [None]
  - HYPERTENSION [None]
  - BACK DISORDER [None]
  - CHEST DISCOMFORT [None]
  - DIZZINESS [None]
